FAERS Safety Report 7579893-5 (Version None)
Quarter: 2011Q2

REPORT INFORMATION
  Report Type: 
  Country: None (occurrence: None)
  Receive Date: 20110629
  Receipt Date: 20110616
  Transmission Date: 20111010
  Serious: Yes (Hospitalization, Other)
  Sender: FDA-Public Use
  Company Number: US-ELI_LILLY_AND_COMPANY-US200906004440

PATIENT
  Sex: Female

DRUGS (20)
  1. ADVAIR DISKUS 100/50 [Concomitant]
  2. ACTONEL [Concomitant]
     Dosage: UNK, MONTHLY (1/M)
  3. COUMADIN [Concomitant]
  4. PHENERGAN HCL [Concomitant]
  5. AMBIEN [Concomitant]
  6. SPIRIVA [Concomitant]
  7. ALBUTEROL SULFATE AUTOHALER [Concomitant]
  8. FORTEO [Suspect]
     Dosage: UNK UNK, QD
     Dates: start: 20090502
  9. DILAUDID [Concomitant]
  10. XANAX [Concomitant]
  11. OXYGEN [Concomitant]
     Dosage: 4 LITER, UNK
  12. FORTEO [Suspect]
     Dosage: UNK, QD
     Route: 065
     Dates: end: 20110505
  13. CALCIUM CARBONATE [Concomitant]
     Dosage: 2000 MG, DAILY (1/D)
  14. VITACON [Concomitant]
     Dosage: UNK, DAILY (1/D)
  15. NEURONTIN [Concomitant]
  16. OXYCONTIN [Concomitant]
  17. FORTEO [Suspect]
     Indication: BONE DISORDER
     Dosage: UNK UNK, QD
     Dates: start: 20040101, end: 20081021
  18. PLAVIX [Concomitant]
  19. BUMEX [Concomitant]
  20. ZANAFLEX [Concomitant]

REACTIONS (16)
  - NAUSEA [None]
  - MEDICAL DEVICE COMPLICATION [None]
  - SPINAL FRACTURE [None]
  - RIB FRACTURE [None]
  - LUMBAR VERTEBRAL FRACTURE [None]
  - DIZZINESS [None]
  - SPINAL COLUMN INJURY [None]
  - INTENTIONAL DRUG MISUSE [None]
  - FOREARM FRACTURE [None]
  - VOMITING [None]
  - HAND FRACTURE [None]
  - FOOT FRACTURE [None]
  - LOSS OF CONSCIOUSNESS [None]
  - FALL [None]
  - OFF LABEL USE [None]
  - HERPES ZOSTER [None]
